FAERS Safety Report 12676087 (Version 2)
Quarter: 2016Q3

REPORT INFORMATION
  Report Type: Report from Study
  Country: US (occurrence: US)
  Receive Date: 20160823
  Receipt Date: 20160825
  Transmission Date: 20161109
  Serious: Yes (Hospitalization, Other)
  Sender: FDA-Public Use
  Company Number: US-BIOGEN-2016BI00279165

PATIENT
  Age: 66 Year
  Sex: Female

DRUGS (1)
  1. TYSABRI [Suspect]
     Active Substance: NATALIZUMAB
     Indication: MULTIPLE SCLEROSIS
     Route: 065
     Dates: start: 20160315

REACTIONS (3)
  - Myocardial infarction [Not Recovered/Not Resolved]
  - Drug dose omission [Unknown]
  - Gastrointestinal ulcer haemorrhage [Unknown]

NARRATIVE: CASE EVENT DATE: 201608
